FAERS Safety Report 9805103 (Version 2)
Quarter: 2014Q1

REPORT INFORMATION
  Report Type: Spontaneous
  Country: US (occurrence: US)
  Receive Date: 20140109
  Receipt Date: 20140115
  Transmission Date: 20141002
  Serious: No
  Sender: FDA-Public Use
  Company Number: US-BIOGENIDEC-2014BI001931

PATIENT
  Age: 64 Year
  Sex: Female

DRUGS (2)
  1. AVONEX [Suspect]
     Indication: MULTIPLE SCLEROSIS
     Route: 030
     Dates: start: 20130408
  2. AVONEX [Suspect]
     Indication: MULTIPLE SCLEROSIS
     Route: 030
     Dates: start: 201304

REACTIONS (5)
  - Gait disturbance [Recovered/Resolved]
  - Tremor [Not Recovered/Not Resolved]
  - Dysstasia [Recovered/Resolved]
  - Muscle twitching [Not Recovered/Not Resolved]
  - Incontinence [Not Recovered/Not Resolved]
